FAERS Safety Report 9919948 (Version 2)
Quarter: 2014Q2

REPORT INFORMATION
  Report Type: Spontaneous
  Country: US (occurrence: US)
  Receive Date: 20140224
  Receipt Date: 20140423
  Transmission Date: 20141212
  Serious: No
  Sender: FDA-Public Use
  Company Number: US-TEVA-464852USA

PATIENT
  Age: 19 Year
  Sex: Female
  Weight: 49.49 kg

DRUGS (1)
  1. PLAN B ONE-STEP [Suspect]
     Indication: POST COITAL CONTRACEPTION
     Dosage: 1.5 MILLIGRAM DAILY;
     Route: 048
     Dates: start: 20140203, end: 20140203

REACTIONS (2)
  - Abdominal distension [Recovered/Resolved]
  - Menstruation irregular [Recovered/Resolved]
